FAERS Safety Report 5098962-5 (Version None)
Quarter: 2006Q3

REPORT INFORMATION
  Report Type: 
  Country: None (occurrence: None)
  Receive Date: 20060907
  Receipt Date: 20060731
  Transmission Date: 20061208
  Serious: Yes (Other)
  Sender: FDA-Public Use
  Company Number: US-BRISTOL-MYERS SQUIBB COMPANY-13460753

PATIENT
  Age: 75 Year
  Sex: Female
  Weight: 73 kg

DRUGS (6)
  1. COUMADIN [Suspect]
     Indication: ATRIAL FIBRILLATION
     Dosage: DOSE:  INITIATED AT 1 MG DAILY; THEN SWITCHED TO 2 MG DAILY ALTERNATING WITH 1 MG DAILY
     Dates: start: 20060101, end: 20060101
  2. TAMBOCOR [Suspect]
  3. ATIVAN [Concomitant]
  4. OGEN [Concomitant]
  5. CALCIUM GLUCONATE [Concomitant]
  6. Z-BEC COMPLEX [Concomitant]

REACTIONS (11)
  - ANGER [None]
  - ASTHENIA [None]
  - CRYING [None]
  - DEPRESSION [None]
  - DIZZINESS [None]
  - DYSGEUSIA [None]
  - DYSPNOEA [None]
  - FATIGUE [None]
  - LETHARGY [None]
  - MALAISE [None]
  - NERVOUSNESS [None]
